FAERS Safety Report 5137513-3 (Version None)
Quarter: 2006Q4

REPORT INFORMATION
  Report Type: 
  Country: None (occurrence: None)
  Receive Date: 20061030
  Receipt Date: 20051114
  Transmission Date: 20070319
  Serious: No
  Sender: FDA-Public Use
  Company Number: US-GLAXOSMITHKLINE-A0582195A

PATIENT
  Sex: Male

DRUGS (9)
  1. ADVAIR HFA [Suspect]
     Indication: ASTHMA
     Dosage: 1PUFF PER DAY
     Route: 055
  2. XANAX [Concomitant]
  3. WELLBUTRIN [Concomitant]
  4. HYDROCHLOROTHIAZIDE [Concomitant]
  5. DILTIAZEM HCL [Concomitant]
  6. LIPITOR [Concomitant]
  7. LISINOPRIL [Concomitant]
  8. TRAZODONE HCL [Concomitant]
  9. ASPIRIN [Concomitant]

REACTIONS (1)
  - CHEST DISCOMFORT [None]
